FAERS Safety Report 7386093-0 (Version None)
Quarter: 2011Q1

REPORT INFORMATION
  Report Type: 
  Country: None (occurrence: None)
  Receive Date: 20110317
  Receipt Date: 20110310
  Transmission Date: 20110831
  Serious: Yes (Other)
  Sender: FDA-Public Use
  Company Number: 2011027562

PATIENT
  Sex: Male

DRUGS (1)
  1. CARIMUNE NF [Suspect]
     Indication: CHRONIC INFLAMMATORY DEMYELINATING POLYRADICULONEUROPATHY
     Dosage: 165 G 1X/3 WEEKS, 33 G ON 5 DAYS EVERY 3 WEEKS, INTRAVENOUS, (NOT OTHERWISE SPECIFIED), 12G, 6G, 3G;
     Route: 042
     Dates: start: 20090601

REACTIONS (2)
  - EPSTEIN-BARR VIRUS ANTIBODY POSITIVE [None]
  - HERPES SIMPLEX SEROLOGY POSITIVE [None]
